FAERS Safety Report 6633022-0 (Version None)
Quarter: 2010Q1

REPORT INFORMATION
  Report Type: 
  Country: None (occurrence: None)
  Receive Date: 20100312
  Receipt Date: 20100310
  Transmission Date: 20100710
  Serious: Yes (Life-Threatening, Hospitalization, Other)
  Sender: FDA-Public Use
  Company Number: BE-ROCHE-644152

PATIENT
  Sex: Male

DRUGS (25)
  1. BEVACIZUMAB [Suspect]
     Indication: ACUTE MYELOID LEUKAEMIA
     Dosage: FORM: INFUSION, FREQ: DAY1,15 (PROTOCOL). FIRST CYCLE. DISCONT PERMANENTLY,
     Route: 042
     Dates: start: 20090625
  2. CYTARABINE [Suspect]
     Indication: ACUTE MYELOID LEUKAEMIA
     Dosage: FREQUENCY :DAY 1-7, LAST DOSE PRIOR TO SAE: 01 JULY 2009. FIRST CYCLE, FORM: INFUSION
     Route: 042
     Dates: start: 20090625
  3. CYTARABINE [Suspect]
     Route: 042
     Dates: start: 20090820, end: 20090820
  4. CYTARABINE [Suspect]
     Route: 042
     Dates: start: 20090821, end: 20090825
  5. CYTARABINE [Suspect]
     Dosage: LAST DOSE PRIOR TO SAE ON 26 AUGUST 2009
     Route: 042
     Dates: start: 20090826
  6. DAUNORUBICIN HCL [Suspect]
     Indication: ACUTE MYELOID LEUKAEMIA
     Dosage: FREQUENCY:DAY 1,2,3 (PER PROTOCOL).LAST DOSE PRIOR TO SAE:27 JUN 2009. FIRST CYCLE, FORM: INFUSION
     Route: 042
     Dates: start: 20090625
  7. MAXIPIME [Concomitant]
     Indication: INFECTION
     Dosage: DRUG NAME REPORTED AS MAXIPIM.
     Route: 042
     Dates: start: 20090625, end: 20090626
  8. ENOXAPARIN SODIUM [Concomitant]
     Indication: PROPHYLAXIS
     Route: 058
     Dates: start: 20090701, end: 20090730
  9. ENOXAPARIN SODIUM [Concomitant]
     Dosage: LAST DOSE PRIOR TO SAE ON 24 SEPTEMBER 2009
     Route: 058
     Dates: start: 20090914
  10. BISOPROLOL [Concomitant]
     Route: 048
     Dates: start: 20090701, end: 20090728
  11. BISOPROLOL [Concomitant]
     Dosage: LAST DOSE PRIOR TO SAE ON 24 SEPTEMBER 2009
     Route: 048
  12. LISINOPRIL [Concomitant]
     Route: 048
     Dates: start: 20090701, end: 20090731
  13. AMLODIPINE [Concomitant]
     Route: 048
     Dates: start: 20090701, end: 20090731
  14. TERAZOSIN HCL [Concomitant]
     Route: 048
     Dates: start: 20090701, end: 20090731
  15. TAMSULOSINE [Concomitant]
     Route: 048
     Dates: start: 20090728, end: 20090730
  16. TAMSULOSINE [Concomitant]
     Dosage: LAST DOSE PRIOR TO SAE ON 22 SEPTEMBER 2009
     Route: 048
  17. HYDREA [Concomitant]
     Route: 048
     Dates: start: 20090625, end: 20090625
  18. DIFLUCAN [Concomitant]
     Dates: start: 20090625, end: 20090626
  19. PARACETAMOL [Concomitant]
     Route: 048
     Dates: start: 20090625, end: 20090626
  20. ZANTAC [Concomitant]
     Route: 048
     Dates: start: 20090625, end: 20090626
  21. MAGNESIUM SULFATE [Concomitant]
     Dosage: TEST NAME REPORTED AS MAGNETOF.
     Route: 048
     Dates: start: 20090729, end: 20090731
  22. MEROPENEM [Concomitant]
     Route: 042
     Dates: start: 20090701, end: 20090727
  23. CLORAZEPATE DIPOTASSIUM [Concomitant]
     Indication: ANXIETY
     Route: 048
     Dates: start: 20090701, end: 20090730
  24. CASPOFUNGIN [Concomitant]
     Indication: ASPERGILLOSIS
     Dosage: LAST DOSE PROIR TO SAE ON 24 SEPTEMBER 2009
     Route: 042
     Dates: start: 20090909
  25. POTASSIUM [Concomitant]
     Dosage: LAST DOSE PRIOR TO SAE ON 24 SEP 2009
     Route: 042
     Dates: start: 20090922

REACTIONS (3)
  - ACUTE RESPIRATORY DISTRESS SYNDROME [None]
  - CHOLECYSTITIS [None]
  - URINARY BLADDER HAEMORRHAGE [None]
